FAERS Safety Report 5948508-1 (Version None)
Quarter: 2008Q4

REPORT INFORMATION
  Report Type: 
  Country: None (occurrence: None)
  Receive Date: 20081111
  Receipt Date: 20081107
  Transmission Date: 20090506
  Serious: Yes (Other)
  Sender: FDA-Public Use
  Company Number: B0545377A

PATIENT
  Age: 69 Year
  Sex: Female
  Weight: 55 kg

DRUGS (9)
  1. AMOXICILLIN [Suspect]
     Indication: CHRONIC OBSTRUCTIVE PULMONARY DISEASE
     Dosage: 1500MG PER DAY
     Route: 048
     Dates: start: 20080610, end: 20080615
  2. NITROGLYCERIN [Concomitant]
     Dates: start: 20011113
  3. DILTIAZEM HYDROCHLORIDE [Concomitant]
     Dosage: 180MG PER DAY
     Route: 048
     Dates: start: 20011120
  4. SIMVASTATIN [Concomitant]
     Dosage: 20MG PER DAY
     Route: 048
     Dates: start: 20011120
  5. ALBUTEROL SULFATE [Concomitant]
     Route: 055
     Dates: start: 20020701
  6. SERETIDE [Concomitant]
     Route: 055
     Dates: start: 20050830
  7. TIOTROPIUM BROMIDE [Concomitant]
     Dosage: 18MCG PER DAY
     Route: 055
     Dates: start: 20040723
  8. LEVOTHYROXINE SODIUM [Concomitant]
     Dosage: 100MCG PER DAY
     Route: 048
     Dates: start: 20010126
  9. ASPIRIN [Concomitant]
     Dosage: 75MG PER DAY
     Route: 048
     Dates: start: 20080219

REACTIONS (2)
  - HYPONATRAEMIA [None]
  - MYALGIA [None]
